FAERS Safety Report 16485791 (Version 1)
Quarter: 2019Q2

REPORT INFORMATION
  Report Type: Spontaneous
  Country: PL (occurrence: PL)
  Receive Date: 20190627
  Receipt Date: 20190627
  Transmission Date: 20190711
  Serious: Yes (Hospitalization)
  Sender: FDA-Public Use
  Company Number: PL-BAUSCH-BL-2019-018113

PATIENT
  Age: 56 Year
  Sex: Female

DRUGS (6)
  1. OMEPRAZOLE. [Suspect]
     Active Substance: OMEPRAZOLE
     Indication: SPINAL PAIN
     Route: 065
  2. CELECOXIB. [Suspect]
     Active Substance: CELECOXIB
     Indication: SPINAL PAIN
     Route: 065
  3. INDAPAMIDE. [Suspect]
     Active Substance: INDAPAMIDE
     Indication: HYPERTENSION
     Route: 065
  4. ENALAPRIL MALEATE. [Suspect]
     Active Substance: ENALAPRIL MALEATE
     Indication: HYPERTENSION
     Route: 065
  5. HYDROXYZINE HYDROCHLORIDE. [Suspect]
     Active Substance: HYDROXYZINE HYDROCHLORIDE
     Indication: INSOMNIA
     Route: 065
  6. SERTRALINE [Suspect]
     Active Substance: SERTRALINE HYDROCHLORIDE
     Indication: DEPRESSION
     Route: 065

REACTIONS (2)
  - Drug interaction [Recovered/Resolved]
  - Burning mouth syndrome [Recovered/Resolved]
